FAERS Safety Report 8115077-X (Version None)
Quarter: 2012Q1

REPORT INFORMATION
  Report Type: 
  Country: None (occurrence: None)
  Receive Date: 20120206
  Receipt Date: 20120126
  Transmission Date: 20120608
  Serious: Yes (Hospitalization, Other)
  Sender: FDA-Public Use
  Company Number: US-CELGENEUS-163-21880-10080124

PATIENT
  Age: 73 Year
  Sex: Male
  Weight: 60.6 kg

DRUGS (17)
  1. DOCETAXEL [Suspect]
     Dosage: 75 MILLIGRAM/SQ. METER
     Route: 041
     Dates: start: 20100726, end: 20100707
  2. DOCETAXEL [Suspect]
     Dosage: 122 MILLIGRAM
     Route: 041
     Dates: start: 20110314
  3. BEVACIZUMAB [Suspect]
     Dosage: 909 MILLIGRAM
     Route: 041
     Dates: start: 20111219
  4. LOVENOX [Concomitant]
     Route: 065
  5. REVLIMID [Suspect]
     Dosage: 25 MILLIGRAM
     Route: 048
     Dates: start: 20100302
  6. REVLIMID [Suspect]
     Dosage: 300 MILLIGRAM
     Route: 048
     Dates: start: 20100808
  7. PREDNISONE TAB [Suspect]
     Dosage: 5 MILLIGRAM
     Route: 048
     Dates: start: 20100726, end: 20100726
  8. REVLIMID [Suspect]
     Dosage: 25 MILLIGRAM
     Route: 048
     Dates: start: 20100726, end: 20100720
  9. BEVACIZUMAB [Suspect]
     Dosage: 15 MILLIGRAM/KILOGRAM
     Route: 041
     Dates: start: 20100302
  10. SENNA [Concomitant]
     Route: 065
  11. COLACE [Concomitant]
     Route: 065
  12. DOCETAXEL [Suspect]
     Dosage: 75 MILLIGRAM/SQ. METER
     Route: 041
     Dates: start: 20100302
  13. BEVACIZUMAB [Suspect]
     Dosage: 15 MILLIGRAM/KILOGRAM
     Route: 041
     Dates: start: 20100726, end: 20100707
  14. PREDNISONE TAB [Suspect]
     Dosage: 5 MILLIGRAM
     Route: 048
     Dates: start: 20100302
  15. PREDNISONE TAB [Suspect]
     Dosage: 210 MILLIGRAM
     Route: 048
     Dates: start: 20120109
  16. CYCLOBENZAPRINE [Concomitant]
     Route: 065
  17. OXYCODONE HCL [Concomitant]
     Route: 065

REACTIONS (3)
  - STOMATITIS [None]
  - OSTEONECROSIS OF JAW [None]
  - NEUTROPHIL COUNT DECREASED [None]
